FAERS Safety Report 11910952 (Version 3)
Quarter: 2016Q3

REPORT INFORMATION
  Report Type: Spontaneous
  Country: IT (occurrence: IT)
  Receive Date: 20160112
  Receipt Date: 20160817
  Transmission Date: 20161109
  Serious: Yes (Other)
  Sender: FDA-Public Use
  Company Number: IT-AUROBINDO-AUR-APL-2016-00015

PATIENT
  Age: 27 Year
  Sex: Female

DRUGS (1)
  1. TOPIRAMATE FILM-COATED TABLET [Suspect]
     Active Substance: TOPIRAMATE
     Indication: PARTIAL SEIZURES
     Route: 048

REACTIONS (3)
  - Product substitution issue [Recovering/Resolving]
  - Epilepsy [Recovering/Resolving]
  - Seizure [Recovering/Resolving]

NARRATIVE: CASE EVENT DATE: 20151101
